FAERS Safety Report 6653434-9 (Version None)
Quarter: 2010Q1

REPORT INFORMATION
  Report Type: 
  Country: None (occurrence: None)
  Receive Date: 20100326
  Receipt Date: 20100319
  Transmission Date: 20100710
  Serious: Yes (Other)
  Sender: FDA-Public Use
  Company Number: PHHY2010JP04626

PATIENT
  Sex: Male
  Weight: 55 kg

DRUGS (6)
  1. ZOMETA [Suspect]
     Indication: METASTASES TO BONE
     Dosage: 4 MG, QMO
     Route: 042
     Dates: start: 20091001, end: 20091201
  2. LEUPLIN [Suspect]
     Indication: PROSTATE CANCER
     Dosage: 11.25 MG
     Route: 030
     Dates: start: 20071226
  3. CASODEX [Suspect]
     Indication: PROSTATE CANCER
     Dosage: 80 MG DAILY
     Route: 048
     Dates: start: 20071212, end: 20100113
  4. ESTRAMUSTINE PHOSPHATE SODIUM [Concomitant]
  5. LANTUS [Concomitant]
     Dosage: 10 UNITS, QD
  6. ESTRAMUSTINE PHOSPHATE SODIUM [Concomitant]
     Route: 048

REACTIONS (9)
  - ADRENAL DISORDER [None]
  - BLOOD CORTISOL INCREASED [None]
  - DIABETES MELLITUS [None]
  - HORMONE LEVEL ABNORMAL [None]
  - HYPERGLYCAEMIA [None]
  - METASTASES TO ADRENALS [None]
  - PROSTATIC SPECIFIC ANTIGEN INCREASED [None]
  - THIRST [None]
  - WEIGHT DECREASED [None]
